FAERS Safety Report 6130472-6 (Version None)
Quarter: 2009Q1

REPORT INFORMATION
  Report Type: 
  Country: None (occurrence: None)
  Receive Date: 20090323
  Receipt Date: 20090313
  Transmission Date: 20090719
  Serious: Yes (Death, Hospitalization)
  Sender: FDA-Public Use
  Company Number: KV200900409

PATIENT
  Age: 68 Year
  Sex: Female

DRUGS (2)
  1. MORPHINE SULFATE [Suspect]
     Indication: PAIN
     Dosage: PRN, ORAL
     Route: 048
     Dates: start: 20080401
  2. NUMEROUS UNSPECIFIED MEDICATIONS [Concomitant]

REACTIONS (2)
  - ACUTE RESPIRATORY FAILURE [None]
  - INFECTION [None]
